FAERS Safety Report 12768288 (Version 1)
Quarter: 2016Q3

REPORT INFORMATION
  Report Type: Spontaneous
  Country: CH (occurrence: CH)
  Receive Date: 20160921
  Receipt Date: 20160921
  Transmission Date: 20161109
  Serious: Yes (Other)
  Sender: FDA-Public Use
  Company Number: CH-TEVA-692250ISR

PATIENT
  Age: 68 Year
  Sex: Male
  Weight: 69 kg

DRUGS (8)
  1. ATACAND [Suspect]
     Active Substance: CANDESARTAN CILEXETIL
     Indication: ESSENTIAL HYPERTENSION
     Dosage: 32 MILLIGRAM DAILY; LONG TERM TREATMENT
     Route: 048
  2. IBUPROFEN. [Suspect]
     Active Substance: IBUPROFEN
     Indication: PAIN
     Dosage: LONG TERM TREATMENT
  3. ASPIRIN CARDIO [Concomitant]
     Active Substance: ASPIRIN
     Dosage: 25 MILLIGRAM DAILY;
  4. VIREAD [Suspect]
     Active Substance: TENOFOVIR DISOPROXIL FUMARATE
     Dosage: 1 DOSAGE FORMS DAILY;
     Route: 048
     Dates: start: 20160829, end: 20160829
  5. VIREAD [Suspect]
     Active Substance: TENOFOVIR DISOPROXIL FUMARATE
     Indication: CHRONIC HEPATITIS B
     Dosage: 1 DOSAGE FORMS DAILY;
     Route: 048
     Dates: start: 20150306, end: 20160725
  6. PARACETAMOL [Concomitant]
     Active Substance: ACETAMINOPHEN
  7. MODURETIC MITE [Suspect]
     Active Substance: AMILORIDE HYDROCHLORIDE\HYDROCHLOROTHIAZIDE
     Indication: HYPERTENSION
     Dosage: 1 DOSAGE FORMS DAILY; 1 DF = 25 MG HYDROCHLOROTHIAZIDE + 2.5 MG AMILORIDE HYDROCHLORIDE
     Route: 048
  8. PANTOPRAZOL [Concomitant]
     Active Substance: PANTOPRAZOLE SODIUM

REACTIONS (9)
  - Muscular weakness [Recovered/Resolved]
  - Renal failure [Recovered/Resolved]
  - Vomiting [Recovered/Resolved]
  - Dyspnoea exertional [Recovered/Resolved]
  - Myalgia [Recovered/Resolved]
  - Blood creatine phosphokinase increased [Recovered/Resolved]
  - Blood potassium increased [Recovered/Resolved]
  - Asthenia [Recovered/Resolved]
  - Hyperlactacidaemia [Recovered/Resolved]

NARRATIVE: CASE EVENT DATE: 201605
